FAERS Safety Report 10440715 (Version 1)
Quarter: 2014Q3

REPORT INFORMATION
  Report Type: Spontaneous
  Country: US (occurrence: None)
  Receive Date: 20140908
  Receipt Date: 20140908
  Transmission Date: 20150326
  Serious: No
  Sender: FDA-Public Use
  Company Number: None

PATIENT
  Age: 40 Year
  Sex: Male
  Weight: 68.49 kg

DRUGS (3)
  1. PREDNISONE. [Concomitant]
     Active Substance: PREDNISONE
  2. DOXY [Concomitant]
     Active Substance: DOXYCYCLINE
  3. EPIPEN [Suspect]
     Active Substance: EPINEPHRINE

REACTIONS (2)
  - Needle issue [None]
  - Incorrect dose administered by device [None]

NARRATIVE: CASE EVENT DATE: 20140829
